FAERS Safety Report 24742166 (Version 2)
Quarter: 2025Q2

REPORT INFORMATION
  Report Type: Report from Study
  Country: BE (occurrence: BE)
  Receive Date: 20241217
  Receipt Date: 20250401
  Transmission Date: 20250717
  Serious: Yes (Other)
  Sender: EXELIXIS
  Company Number: BE-IPSEN Group, Research and Development-2024-25394

PATIENT

DRUGS (9)
  1. CABOZANTINIB [Suspect]
     Active Substance: CABOZANTINIB
     Indication: Renal cell carcinoma
     Dosage: 20 MG, QD
     Route: 065
     Dates: start: 20241022
  2. MEDROL [Concomitant]
     Active Substance: METHYLPREDNISOLONE
     Indication: Prophylaxis
     Dosage: 16 MG, QD
     Dates: start: 20241016, end: 20241120
  3. MEDROL [Concomitant]
     Active Substance: METHYLPREDNISOLONE
     Dosage: 8 MG, QD
     Dates: start: 20241121, end: 20241217
  4. MEDROL [Concomitant]
     Active Substance: METHYLPREDNISOLONE
     Dosage: 4 MG, QD
     Dates: start: 20241218, end: 20250116
  5. AMOXICILLIN [Concomitant]
     Active Substance: AMOXICILLIN
     Indication: Dyspnoea
     Dates: start: 20250322
  6. BISOPROLOL [Concomitant]
     Active Substance: BISOPROLOL
     Indication: Prophylaxis
     Dosage: 2.5 MG, QD
     Dates: start: 20250211
  7. DAFALGAN [Concomitant]
     Active Substance: ACETAMINOPHEN
     Indication: Pyrexia
     Dates: start: 20250211
  8. APIXABAN [Concomitant]
     Active Substance: APIXABAN
     Indication: Prophylaxis
     Dates: start: 20250211
  9. HYDROCORTISONE [Concomitant]
     Active Substance: HYDROCORTISONE
     Dates: start: 20250211

REACTIONS (1)
  - Hepatic cytolysis [Recovered/Resolved]

NARRATIVE: CASE EVENT DATE: 20241104
